FAERS Safety Report 5318808-7 (Version None)
Quarter: 2007Q2

REPORT INFORMATION
  Report Type: 
  Country: None (occurrence: None)
  Receive Date: 20070508
  Receipt Date: 20070504
  Transmission Date: 20071010
  Serious: Yes (Other)
  Sender: FDA-Public Use
  Company Number: US-ASTRAZENECA-2007UW09483

PATIENT
  Age: 64 Year
  Sex: Female
  Weight: 88.9 kg

DRUGS (5)
  1. CRESTOR [Suspect]
     Indication: BLOOD CHOLESTEROL INCREASED
     Route: 048
     Dates: start: 20070401
  2. BETAPACE [Concomitant]
  3. WARFARIN SODIUM [Concomitant]
  4. ACTONEL [Concomitant]
  5. TRIAMTERENE [Concomitant]

REACTIONS (2)
  - ATRIAL FIBRILLATION [None]
  - MYALGIA [None]
